FAERS Safety Report 4789825-0 (Version None)
Quarter: 2005Q4

REPORT INFORMATION
  Report Type: 
  Country: None (occurrence: None)
  Receive Date: 20051006
  Receipt Date: 20050929
  Transmission Date: 20060501
  Serious: Yes (Other)
  Sender: FDA-Public Use
  Company Number: FR-GLAXOSMITHKLINE-B0396310A

PATIENT
  Age: 26 Year
  Sex: Male

DRUGS (3)
  1. IMIJECT [Suspect]
     Indication: FACIAL PAIN
     Dosage: 2INJ PER DAY
     Route: 058
  2. VERAPAMIL [Concomitant]
     Indication: FACIAL PAIN
     Dosage: 80MG THREE TIMES PER DAY
     Route: 065
  3. SUBUTEX [Concomitant]
     Route: 065

REACTIONS (1)
  - DRUG DEPENDENCE [None]
